FAERS Safety Report 8569192 (Version 2)
Quarter: 2013Q3

REPORT INFORMATION
  Report Type: Report from Study
  Country: US (occurrence: US)
  Receive Date: 20120518
  Receipt Date: 20130920
  Transmission Date: 20140515
  Serious: Yes (Hospitalization)
  Sender: FDA-Public Use
  Company Number: US-ALEXION-A201200475

PATIENT
  Age: 64 Year
  Sex: Male

DRUGS (3)
  1. SOLIRIS [Suspect]
     Indication: HAEMOLYTIC URAEMIC SYNDROME
     Dosage: 900 MG, UNK
     Route: 042
     Dates: start: 20120306, end: 20120306
  2. HEPARIN [Suspect]
     Indication: HAEMOLYTIC URAEMIC SYNDROME
  3. COUMADIN [Suspect]
     Indication: HAEMOLYTIC URAEMIC SYNDROME

REACTIONS (9)
  - Endocarditis [Unknown]
  - Intracardiac thrombus [Unknown]
  - Atrial fibrillation [Unknown]
  - Haemoptysis [Unknown]
  - Epistaxis [Unknown]
  - Heparin-induced thrombocytopenia [Unknown]
  - Red blood cell schistocytes present [Unknown]
  - Blood creatinine abnormal [Unknown]
  - Haemoglobin decreased [Unknown]
